FAERS Safety Report 25925509 (Version 1)
Quarter: 2025Q4

REPORT INFORMATION
  Report Type: Spontaneous
  Country: US (occurrence: None)
  Receive Date: 20251014
  Receipt Date: 20251014
  Transmission Date: 20260117
  Serious: Yes (Other)
  Sender: FDA-CTU
  Company Number: None

PATIENT
  Age: 13 Year
  Sex: Male

DRUGS (11)
  1. CUVITRU [Suspect]
     Active Substance: HUMAN IMMUNOGLOBULIN G
     Dosage: OTHER STRENGTH : 4/20 GM/ML;?FREQUENCY : WEEKLY;?
     Route: 058
     Dates: start: 20231229
  2. CLONIDINE [Concomitant]
     Active Substance: CLONIDINE
  3. CUVITRU [Concomitant]
     Active Substance: HUMAN IMMUNOGLOBULIN G
  4. FLUDROCORTISONE [Concomitant]
     Active Substance: FLUDROCORTISONE
  5. GUANFACINE [Concomitant]
     Active Substance: GUANFACINE
  6. GUANFACINE [Concomitant]
     Active Substance: GUANFACINE
  7. LOVENOX [Concomitant]
     Active Substance: ENOXAPARIN SODIUM
  8. MYCOPHENOLAT SUS [Concomitant]
  9. ONDANSETRON [Concomitant]
     Active Substance: ONDANSETRON
  10. PEG 3350 POW [Concomitant]
  11. PREDNISOLONE SOL [Concomitant]

REACTIONS (1)
  - Renal transplant [None]

NARRATIVE: CASE EVENT DATE: 20251013
